FAERS Safety Report 12517090 (Version 1)
Quarter: 2016Q2

REPORT INFORMATION
  Report Type: Spontaneous
  Country: US (occurrence: US)
  Receive Date: 20160630
  Receipt Date: 20160630
  Transmission Date: 20160815
  Serious: Yes (Other)
  Sender: FDA-Public Use
  Company Number: US-PFIZER INC-2016320372

PATIENT
  Age: 39 Year
  Sex: Female

DRUGS (1)
  1. ALPRAZOLAM. [Suspect]
     Active Substance: ALPRAZOLAM
     Dosage: UNK

REACTIONS (8)
  - Drug interaction [Unknown]
  - Suicide attempt [Unknown]
  - Delirium [Unknown]
  - Homicide [Unknown]
  - Akathisia [Unknown]
  - Agitation [Unknown]
  - Euphoric mood [Unknown]
  - Intentional overdose [Unknown]
